FAERS Safety Report 12820364 (Version 1)
Quarter: 2016Q4

REPORT INFORMATION
  Report Type: Report from Study
  Country: US (occurrence: US)
  Receive Date: 20161006
  Receipt Date: 20161006
  Transmission Date: 20170207
  Serious: No
  Sender: FDA-Public Use
  Company Number: US-AMGEN-USASL2015121442

PATIENT
  Age: 57 Year
  Sex: Female

DRUGS (1)
  1. PROLIA [Suspect]
     Active Substance: DENOSUMAB
     Indication: OSTEOPOROSIS POSTMENOPAUSAL
     Dosage: UNK
     Route: 065
     Dates: start: 2012

REACTIONS (8)
  - Tooth disorder [Unknown]
  - Fracture pain [Unknown]
  - Bone density abnormal [Unknown]
  - Tooth repair [Unknown]
  - Sensory disturbance [Unknown]
  - Condition aggravated [Unknown]
  - Tooth fracture [Unknown]
  - Gingival pain [Unknown]
